FAERS Safety Report 6024106-9 (Version None)
Quarter: 2008Q4

REPORT INFORMATION
  Report Type: 
  Country: None (occurrence: None)
  Receive Date: 20081224
  Receipt Date: 20081215
  Transmission Date: 20090506
  Serious: Yes (Hospitalization)
  Sender: FDA-Public Use
  Company Number: 8040336

PATIENT
  Age: 19 Year
  Sex: Male
  Weight: 70.3 kg

DRUGS (6)
  1. CIMZIA [Suspect]
     Indication: CROHN'S DISEASE
     Dosage: 400 MG SC
     Route: 058
     Dates: start: 20081201
  2. BENTYL [Concomitant]
  3. MERCAPTOPURINE [Concomitant]
  4. CALCIUM D [Concomitant]
  5. MULTI-VITAMIN [Concomitant]
  6. BONIVA [Concomitant]

REACTIONS (7)
  - ABDOMINAL PAIN UPPER [None]
  - BLOOD POTASSIUM DECREASED [None]
  - DIARRHOEA [None]
  - GASTRIC DISORDER [None]
  - JOINT SWELLING [None]
  - SWELLING [None]
  - WHITE BLOOD CELL COUNT INCREASED [None]
